FAERS Safety Report 7327940-8 (Version None)
Quarter: 2011Q1

REPORT INFORMATION
  Report Type: 
  Country: None (occurrence: None)
  Receive Date: 20110303
  Receipt Date: 20110223
  Transmission Date: 20110831
  Serious: Yes (Hospitalization)
  Sender: FDA-Public Use
  Company Number: US-JNJFOC-20110207975

PATIENT
  Sex: Female
  Weight: 51.71 kg

DRUGS (2)
  1. DURAGESIC-50 [Suspect]
     Indication: SPINAL FUSION SURGERY
     Route: 062
  2. DURAGESIC-50 [Suspect]
     Indication: FIBROMYALGIA
     Route: 062

REACTIONS (3)
  - VULVAL OEDEMA [None]
  - PRECANCEROUS CELLS PRESENT [None]
  - GENITAL PAIN [None]
